FAERS Safety Report 5711387-1 (Version None)
Quarter: 2008Q2

REPORT INFORMATION
  Report Type: 
  Country: None (occurrence: None)
  Receive Date: 20080418
  Receipt Date: 20080418
  Transmission Date: 20081010
  Serious: Yes (Hospitalization)
  Sender: FDA-Public Use
  Company Number: None

PATIENT
  Sex: Female
  Weight: 56.6 kg

DRUGS (2)
  1. CYTARABINE [Suspect]
     Dosage: 25600 MG
     Dates: start: 20080312, end: 20080315
  2. ETOPOSIDE [Suspect]
     Dosage: 2064 MG
     Dates: end: 20080315

REACTIONS (3)
  - BACTERIAL INFECTION [None]
  - CENTRAL LINE INFECTION [None]
  - FEBRILE NEUTROPENIA [None]
